FAERS Safety Report 5196576-X (Version None)
Quarter: 2006Q4

REPORT INFORMATION
  Report Type: 
  Country: None (occurrence: None)
  Receive Date: 20061222
  Receipt Date: 20061222
  Transmission Date: 20070319
  Serious: Yes (Hospitalization)
  Sender: FDA-Public Use
  Company Number: None

PATIENT
  Age: 15 Year
  Sex: Female

DRUGS (9)
  1. CEFDITOREN PIVOXIL 300 MG [Suspect]
     Indication: NASOPHARYNGITIS
     Dosage: 300MG/DAY ORAL
     Route: 048
  2. TEGRETOL [Concomitant]
  3. DEPAS (ETIZOLAM), [Concomitant]
  4. MEILAX (ETHYL LOFAZEPATE) [Concomitant]
  5. LEXOTAN (BROMAZEPAM) [Concomitant]
  6. LUDIOMIL [Concomitant]
  7. LOXONIN (LOXOPROFEN SODIUM) [Concomitant]
  8. MUCOSTA (REBAMIPIDE) [Concomitant]
  9. BIOFERMIN-R (ANTIBIOTICS-RESISTANT LACTIC ACID BACTERIAE) [Concomitant]

REACTIONS (1)
  - HEPATIC FUNCTION ABNORMAL [None]
